FAERS Safety Report 17404218 (Version 1)
Quarter: 2020Q1

REPORT INFORMATION
  Report Type: Spontaneous
  Country: SE (occurrence: SE)
  Receive Date: 20200211
  Receipt Date: 20200211
  Transmission Date: 20200409
  Serious: Yes (Other)
  Sender: FDA-Public Use
  Company Number: SE-MALLINCKRODT-T202000633

PATIENT
  Age: 48 Year
  Sex: Female
  Weight: 69 kg

DRUGS (3)
  1. UVADEX [Suspect]
     Active Substance: METHOXSALEN
     Indication: GRAFT VERSUS HOST DISEASE
     Dosage: 2+3+2  WEEKLY, EXTRACORPOREAL
     Route: 050
     Dates: start: 20200115, end: 20200131
  2. FURIX [Concomitant]
     Indication: PRODUCT USED FOR UNKNOWN INDICATION
     Dosage: 40 MILLIGRAM
     Route: 065
  3. ANTICOAGULANT CITRATE DEXTROSE [CITRIC ACID;GLUCOSE;SODIUM CITRATE] [Concomitant]
     Indication: ANTICOAGULANT THERAPY
     Dosage: 188 MILLILITER (12:1)
     Route: 065

REACTIONS (1)
  - Pulmonary oedema [Recovered/Resolved]

NARRATIVE: CASE EVENT DATE: 20200131
